FAERS Safety Report 8868622 (Version 1)
Quarter: 2012Q4

REPORT INFORMATION
  Report Type: 
  Country: US (occurrence: US)
  Receive Date: 20121026
  Receipt Date: 20121026
  Transmission Date: 20130627
  Serious: No
  Sender: FDA-Public Use
  Company Number: US-AMGEN-USASP2012046244

PATIENT
  Age: 37 Year
  Sex: Female

DRUGS (10)
  1. ENBREL [Suspect]
     Indication: PRODUCT USED FOR UNKNOWN INDICATION
     Dosage: 50 mg, qwk
     Route: 058
  2. PLAQUENIL                          /00072602/ [Concomitant]
     Dosage: 200 mg, UNK
  3. SOMA [Concomitant]
     Dosage: 250 mg, UNK
  4. MELOXICAM [Concomitant]
     Dosage: 7.5 mg, UNK
  5. METHOTREXATE [Concomitant]
     Dosage: 2.5 mg, UNK
  6. TRAMADOL HCL [Concomitant]
     Dosage: 50 mg, UNK
  7. GABAPENTIN [Concomitant]
     Dosage: 300 mg, UNK
  8. AMITRIPTYLIN [Concomitant]
     Dosage: 25 mg, UNK
  9. OXYCODONE [Concomitant]
     Dosage: 5 mg, UNK
  10. FOLIC ACID [Concomitant]
     Dosage: UNK

REACTIONS (1)
  - Injection site pain [Unknown]
